FAERS Safety Report 9129781 (Version 1)
Quarter: 2013Q1

REPORT INFORMATION
  Report Type: Spontaneous
  Country: US (occurrence: US)
  Receive Date: 20130228
  Receipt Date: 20130228
  Transmission Date: 20140127
  Serious: Yes (Other)
  Sender: FDA-Public Use
  Company Number: US-JNJFOC-20090900028

PATIENT
  Sex: Female

DRUGS (4)
  1. LEVAQUIN [Suspect]
     Indication: BRONCHITIS
     Route: 048
     Dates: start: 2005
  2. LEVAQUIN [Suspect]
     Indication: RESPIRATORY DISORDER
     Route: 048
     Dates: start: 2005
  3. PREDNISONE [Suspect]
     Indication: ASTHMA
     Route: 048
  4. FLONASE [Suspect]
     Indication: ASTHMA
     Route: 045

REACTIONS (2)
  - Tenosynovitis stenosans [Unknown]
  - Tendon rupture [Unknown]
